FAERS Safety Report 9611020 (Version 1)
Quarter: 2013Q4

REPORT INFORMATION
  Report Type: Spontaneous
  Country: FR (occurrence: FR)
  Receive Date: 20131009
  Receipt Date: 20131009
  Transmission Date: 20140711
  Serious: Yes (Other)
  Sender: FDA-Public Use
  Company Number: FR-GLAXOSMITHKLINE-B0926051A

PATIENT
  Age: 60 Year
  Sex: Female

DRUGS (7)
  1. ZOPHREN [Suspect]
     Indication: PROPHYLAXIS OF NAUSEA AND VOMITING
     Route: 042
     Dates: start: 20130710, end: 20130807
  2. OXALIPLATINE [Suspect]
     Indication: ADENOCARCINOMA GASTRIC
     Dosage: 140MG CYCLIC
     Route: 042
     Dates: start: 20130710, end: 20130807
  3. FLUOROURACIL [Suspect]
     Indication: ADENOCARCINOMA GASTRIC
     Route: 042
     Dates: start: 20130710, end: 20130807
  4. EMEND [Suspect]
     Indication: PROPHYLAXIS OF NAUSEA AND VOMITING
     Route: 048
     Dates: start: 20130710, end: 20130807
  5. FOLINIC ACID [Concomitant]
     Indication: ADENOCARCINOMA GASTRIC
     Dates: start: 20130710, end: 20130807
  6. SOLUMEDROL [Concomitant]
     Indication: PREMEDICATION
     Dates: start: 20130710, end: 20130807
  7. LEVOTHYROX [Concomitant]
     Dosage: 125MCG PER DAY

REACTIONS (3)
  - Visual field defect [Recovered/Resolved]
  - Visual field defect [Recovered/Resolved]
  - Papilloedema [Unknown]
